FAERS Safety Report 9989370 (Version 2)
Quarter: 2013Q4

REPORT INFORMATION
  Report Type: Spontaneous
  Country: US (occurrence: None)
  Receive Date: 20131101
  Receipt Date: 20131205
  Transmission Date: 20140711
  Serious: Yes (Hospitalization, Other)
  Sender: FDA-Public Use
  Company Number: ADR-2013-01662

PATIENT
  Age: 17 Year
  Sex: Male

DRUGS (3)
  1. LIORESAL INTRATHECAL [Suspect]
     Indication: MUSCLE SPASTICITY
     Dosage: DAY
     Dates: start: 20080903
  2. SEROQUEL [Concomitant]
  3. ZOLOFT [Concomitant]

REACTIONS (9)
  - Muscle spasticity [None]
  - Hypertonia [None]
  - Muscle rigidity [None]
  - Blindness transient [None]
  - Urinary retention [None]
  - Medication error [None]
  - Post lumbar puncture syndrome [None]
  - Hydrocephalus [None]
  - Anxiety [None]
